FAERS Safety Report 23433795 (Version 2)
Quarter: 2024Q2

REPORT INFORMATION
  Report Type: Spontaneous
  Country: JP (occurrence: JP)
  Receive Date: 20240123
  Receipt Date: 20240417
  Transmission Date: 20240716
  Serious: Yes (Other)
  Sender: FDA-Public Use
  Company Number: JP-002147023-NVSJ2023JP018056

PATIENT

DRUGS (3)
  1. NEORAL [Suspect]
     Active Substance: CYCLOSPORINE
     Indication: Nephrotic syndrome
     Dosage: 75 MG, QD
     Route: 048
     Dates: start: 20231220, end: 20240104
  2. PREDONINE [Concomitant]
     Active Substance: PREDNISOLONE
     Indication: Product used for unknown indication
     Dosage: UNK
     Route: 065
  3. PREDONINE [Concomitant]
     Active Substance: PREDNISOLONE
     Dosage: UNK
     Route: 065

REACTIONS (6)
  - Arrhythmia [Recovered/Resolved]
  - Renal impairment [Unknown]
  - Concomitant disease aggravated [Unknown]
  - Diarrhoea [Unknown]
  - Dehydration [Unknown]
  - Blood glucose increased [Unknown]
